FAERS Safety Report 5422979-1 (Version None)
Quarter: 2007Q3

REPORT INFORMATION
  Report Type: 
  Country: None (occurrence: None)
  Receive Date: 20070820
  Receipt Date: 20070725
  Transmission Date: 20080115
  Serious: Yes (Life-Threatening)
  Sender: FDA-Public Use
  Company Number: 20070198

PATIENT
  Age: 71 Year
  Sex: Female

DRUGS (1)
  1. VENOFER [Suspect]
     Indication: PROPHYLAXIS
     Dosage: 500 MG X 1 INTRAVENOUS DRIP
     Dates: start: 20070516

REACTIONS (5)
  - BLOOD PRESSURE IMMEASURABLE [None]
  - HEART RATE DECREASED [None]
  - INFUSION RELATED REACTION [None]
  - LOSS OF CONSCIOUSNESS [None]
  - MALAISE [None]
